FAERS Safety Report 7250299-1 (Version None)
Quarter: 2011Q1

REPORT INFORMATION
  Report Type: 
  Country: None (occurrence: None)
  Receive Date: 20110128
  Receipt Date: 20110119
  Transmission Date: 20110831
  Serious: Yes (Other)
  Sender: FDA-Public Use
  Company Number: US-SANOFI-AVENTIS-2011SA004774

PATIENT
  Age: 75 Year
  Sex: Male

DRUGS (3)
  1. ALTACE [Concomitant]
     Indication: BLOOD PRESSURE
  2. MULTAQ [Suspect]
     Indication: ATRIAL FIBRILLATION
     Route: 048
     Dates: start: 20110118
  3. COUMADIN [Concomitant]
     Indication: ANTICOAGULANT THERAPY

REACTIONS (1)
  - ATRIAL FIBRILLATION [None]
